FAERS Safety Report 17369264 (Version 1)
Quarter: 2020Q1

REPORT INFORMATION
  Report Type: Spontaneous
  Country: BR (occurrence: BR)
  Receive Date: 20200204
  Receipt Date: 20200204
  Transmission Date: 20200409
  Serious: Yes (Other)
  Sender: FDA-Public Use
  Company Number: BR-ABBVIE-20P-020-3258787-00

PATIENT
  Age: 79 Year
  Sex: Female
  Weight: 65 kg

DRUGS (11)
  1. OLANZAPINE. [Concomitant]
     Active Substance: OLANZAPINE
     Indication: DEMENTIA
  2. DIVALCON [Suspect]
     Active Substance: DIVALPROEX SODIUM
     Indication: ANXIETY
  3. DIVALCON [Suspect]
     Active Substance: DIVALPROEX SODIUM
     Indication: DEMENTIA
  4. OLANZAPINE. [Concomitant]
     Active Substance: OLANZAPINE
     Indication: DEMENTIA ALZHEIMER^S TYPE
     Dosage: AT NIGHT (21:00 PM) TOGETHER WITH DIVALCON ER
     Route: 048
     Dates: start: 201907
  5. CARBOLITIUM [Concomitant]
     Active Substance: LITHIUM CARBONATE
     Indication: DEPRESSION
     Route: 048
  6. OLANZAPINE. [Concomitant]
     Active Substance: OLANZAPINE
     Indication: DEPRESSION
  7. CLONAZEPAM. [Concomitant]
     Active Substance: CLONAZEPAM
     Indication: DEPRESSION
     Dosage: DAILY DOSE: 0.25 TABLET; 9:00 AM; CAN ONLY CONFIRM SHE TOOK IT IN DEC AND JAN
     Route: 048
  8. DIVALCON [Suspect]
     Active Substance: DIVALPROEX SODIUM
     Indication: DEMENTIA ALZHEIMER^S TYPE
  9. OLANZAPINE. [Concomitant]
     Active Substance: OLANZAPINE
     Indication: ANXIETY
  10. DIVALCON [Suspect]
     Active Substance: DIVALPROEX SODIUM
     Indication: DEPRESSION
     Dosage: 9:00 AM AND 21:00 PM
     Route: 048
  11. CARBOLITIUM [Concomitant]
     Active Substance: LITHIUM CARBONATE
     Indication: DEMENTIA ALZHEIMER^S TYPE

REACTIONS (11)
  - Product use in unapproved indication [Unknown]
  - Inappropriate schedule of product administration [Unknown]
  - Dysstasia [Not Recovered/Not Resolved]
  - Paralysis [Not Recovered/Not Resolved]
  - Memory impairment [Not Recovered/Not Resolved]
  - Muscular weakness [Not Recovered/Not Resolved]
  - Peripheral swelling [Not Recovered/Not Resolved]
  - Wrong technique in product usage process [Unknown]
  - Peripheral swelling [Not Recovered/Not Resolved]
  - Coordination abnormal [Unknown]
  - Anal incontinence [Not Recovered/Not Resolved]

NARRATIVE: CASE EVENT DATE: 202001
